FAERS Safety Report 7242355-9 (Version None)
Quarter: 2011Q1

REPORT INFORMATION
  Report Type: 
  Country: None (occurrence: None)
  Receive Date: 20110125
  Receipt Date: 20100217
  Transmission Date: 20110831
  Serious: No
  Sender: FDA-Public Use
  Company Number: 2010BI006815

PATIENT
  Age: 38 Year
  Sex: Female

DRUGS (3)
  1. TYSABRI [Suspect]
     Indication: MULTIPLE SCLEROSIS
     Route: 042
     Dates: start: 20070801, end: 20070901
  2. DIOVAN [Concomitant]
     Indication: HYPERTENSION
  3. TYSABRI [Suspect]
     Route: 042
     Dates: start: 20080525

REACTIONS (9)
  - FATIGUE [None]
  - RASH [None]
  - DEPRESSION [None]
  - ABASIA [None]
  - FEMALE STERILISATION [None]
  - MULTIPLE SCLEROSIS RELAPSE [None]
  - SCIATICA [None]
  - PAIN [None]
  - SCAR [None]
